FAERS Safety Report 8315701-2 (Version None)
Quarter: 2012Q2

REPORT INFORMATION
  Report Type: 
  Country: None (occurrence: None)
  Receive Date: 20120426
  Receipt Date: 20120425
  Transmission Date: 20120825
  Serious: Yes (Hospitalization)
  Sender: FDA-Public Use
  Company Number: GXKR2009GB12104

PATIENT
  Age: 71 Year
  Sex: Female

DRUGS (12)
  1. GLICLAZIDE [Interacting]
     Dosage: 40 MG, BID
     Route: 065
  2. METFORMIN HCL [Interacting]
     Indication: TYPE 2 DIABETES MELLITUS
     Dosage: 1 G, BID
     Route: 065
  3. PERINDOPRIL ERBUMINE [Interacting]
     Route: 065
  4. GLICLAZIDE [Interacting]
     Indication: TYPE 2 DIABETES MELLITUS
     Dosage: 80 MG, BID
     Route: 065
  5. ACETYLSALICYLIC ACID SRT [Suspect]
     Route: 065
  6. CLOPIDOGREL [Interacting]
     Route: 065
  7. ALLOPURINOL [Interacting]
     Route: 065
  8. BENDROFLUMETHIAZIDE [Interacting]
     Route: 065
  9. ALCOHOL [Interacting]
     Route: 065
  10. ATENOLOL [Interacting]
     Route: 065
  11. IRBESARTAN [Interacting]
     Route: 065
  12. DOXAZOSIN MESYLATE [Interacting]
     Route: 065

REACTIONS (12)
  - LACTIC ACIDOSIS [None]
  - BREATH SOUNDS ABNORMAL [None]
  - WHITE BLOOD CELL COUNT INCREASED [None]
  - HYPOTHERMIA [None]
  - CIRCULATORY COLLAPSE [None]
  - HYPOGLYCAEMIA [None]
  - DRUG INTERACTION [None]
  - LOWER RESPIRATORY TRACT INFECTION [None]
  - HYPOTENSION [None]
  - TACHYPNOEA [None]
  - RENAL FAILURE ACUTE [None]
  - COMA [None]
